FAERS Safety Report 15812600 (Version 1)
Quarter: 2019Q1

REPORT INFORMATION
  Report Type: Spontaneous
  Country: US (occurrence: US)
  Receive Date: 20190111
  Receipt Date: 20190111
  Transmission Date: 20190417
  Serious: No
  Sender: FDA-Public Use
  Company Number: US-GLAXOSMITHKLINE-US2019002390

PATIENT
  Sex: Female

DRUGS (1)
  1. ABREVA [Suspect]
     Active Substance: DOCOSANOL
     Indication: ORAL HERPES
     Dosage: UNK
     Dates: start: 20190105

REACTIONS (5)
  - Oral herpes [Unknown]
  - Lip swelling [Unknown]
  - Application site discomfort [Unknown]
  - Condition aggravated [Unknown]
  - Application site pain [Unknown]

NARRATIVE: CASE EVENT DATE: 20190106
